FAERS Safety Report 5465193-6 (Version None)
Quarter: 2007Q3

REPORT INFORMATION
  Report Type: 
  Country: None (occurrence: None)
  Receive Date: 20070920
  Receipt Date: 20070119
  Transmission Date: 20080115
  Serious: Yes (Other)
  Sender: FDA-Public Use
  Company Number: 2007VX000202

PATIENT
  Age: 50 Year
  Sex: Male
  Weight: 87.9978 kg

DRUGS (22)
  1. INTERFERON ALFACON-1 [Suspect]
     Indication: HEPATITIS C
     Dosage: 15 UG;QD;SC
     Route: 058
     Dates: start: 20060708
  2. RIBAVIRIN [Suspect]
     Indication: HEPATITIS C
     Dosage: 600 MG;BID;PO; 600 MG;QAM;PO; 200 MG;QPM;PO; 400 MG;BID;PO; 400 MG;QAM;PO
     Route: 048
     Dates: start: 20060708, end: 20061001
  3. RIBAVIRIN [Suspect]
     Indication: HEPATITIS C
     Dosage: 600 MG;BID;PO; 600 MG;QAM;PO; 200 MG;QPM;PO; 400 MG;BID;PO; 400 MG;QAM;PO
     Route: 048
     Dates: start: 20061002, end: 20070101
  4. RIBAVIRIN [Suspect]
     Indication: HEPATITIS C
     Dosage: 600 MG;BID;PO; 600 MG;QAM;PO; 200 MG;QPM;PO; 400 MG;BID;PO; 400 MG;QAM;PO
     Route: 048
     Dates: start: 20061002, end: 20070101
  5. RIBAVIRIN [Suspect]
     Indication: HEPATITIS C
     Dosage: 600 MG;BID;PO; 600 MG;QAM;PO; 200 MG;QPM;PO; 400 MG;BID;PO; 400 MG;QAM;PO
     Route: 048
     Dates: start: 20070108, end: 20070201
  6. RIBAVIRIN [Suspect]
     Indication: HEPATITIS C
     Dosage: 600 MG;BID;PO; 600 MG;QAM;PO; 200 MG;QPM;PO; 400 MG;BID;PO; 400 MG;QAM;PO
     Route: 048
     Dates: start: 20070223, end: 20070401
  7. RIBAVIRIN [Suspect]
     Indication: HEPATITIS C
     Dosage: 600 MG;BID;PO; 600 MG;QAM;PO; 200 MG;QPM;PO; 400 MG;BID;PO; 400 MG;QAM;PO
     Route: 048
     Dates: start: 20060708
  8. RIBAVIRIN [Suspect]
     Indication: HEPATITIS C
     Dosage: 600 MG;BID;PO; 600 MG;QAM;PO; 200 MG;QPM;PO; 400 MG;BID;PO; 400 MG;QAM;PO
     Route: 048
     Dates: start: 20070423
  9. RIBAVIRIN [Suspect]
     Indication: HEPATITIS C
     Dosage: 600 MG;BID;PO; 600 MG;QAM;PO; 200 MG;QPM;PO; 400 MG;BID;PO; 400 MG;QAM;PO
     Route: 048
     Dates: start: 20070423
  10. WELLBUTRIN [Concomitant]
  11. TRAZODONE HCL [Concomitant]
  12. ZYRTEC-D [Concomitant]
  13. ASMANEX TWISTHALER [Concomitant]
  14. AFRIN [Concomitant]
  15. ASPIRIN [Concomitant]
  16. ALBUTEROL [Concomitant]
  17. CENTRUM [Concomitant]
  18. FLEXERIL [Concomitant]
  19. NAPROXEN [Concomitant]
  20. VITAMIN B-12 [Concomitant]
  21. PALGIC [Concomitant]
  22. TETANUS IMMUNOGLOBULIN [Concomitant]

REACTIONS (48)
  - ANOREXIA [None]
  - ANXIETY [None]
  - ASTHENIA [None]
  - BACK PAIN [None]
  - BLOOD GLUCOSE INCREASED [None]
  - CONSTIPATION [None]
  - COUGH [None]
  - DENTURE WEARER [None]
  - DEPRESSION [None]
  - DERMATITIS [None]
  - DRUG DOSE OMISSION [None]
  - DRUG ERUPTION [None]
  - DRY SKIN [None]
  - DYSPNOEA [None]
  - EOSINOPHIL COUNT DECREASED [None]
  - ERYTHEMA [None]
  - EXCORIATION [None]
  - EYE DISCHARGE [None]
  - FATIGUE [None]
  - HAEMATOCRIT DECREASED [None]
  - HAEMOGLOBIN DECREASED [None]
  - HEADACHE [None]
  - HYPOTHYROIDISM [None]
  - INJECTION SITE PAIN [None]
  - INJECTION SITE REACTION [None]
  - IRRITABILITY [None]
  - LYMPHOPENIA [None]
  - MEAN CELL HAEMOGLOBIN INCREASED [None]
  - MONOCYTE COUNT DECREASED [None]
  - MYOPIA [None]
  - NEUTROPENIA [None]
  - POOR QUALITY SLEEP [None]
  - PRODUCTIVE COUGH [None]
  - RASH PRURITIC [None]
  - RASH VESICULAR [None]
  - RED BLOOD CELL COUNT DECREASED [None]
  - RED CELL DISTRIBUTION WIDTH INCREASED [None]
  - SEDATION [None]
  - SELF-INJURIOUS IDEATION [None]
  - SKIN LESION [None]
  - SLEEP DISORDER [None]
  - TOOTH EXTRACTION [None]
  - TREATMENT NONCOMPLIANCE [None]
  - TREMOR [None]
  - VISION BLURRED [None]
  - WEIGHT DECREASED [None]
  - WHEEZING [None]
  - WHITE BLOOD CELL COUNT DECREASED [None]
